FAERS Safety Report 13306311 (Version 1)
Quarter: 2017Q1

REPORT INFORMATION
  Report Type: Spontaneous
  Country: FR (occurrence: FR)
  Receive Date: 20170308
  Receipt Date: 20170308
  Transmission Date: 20170428
  Serious: Yes (Hospitalization)
  Sender: FDA-Public Use
  Company Number: FR-PURDUE-GBR-2017-0043898

PATIENT
  Age: 54 Year
  Sex: Female

DRUGS (18)
  1. OXYNORM [Suspect]
     Active Substance: OXYCODONE HYDROCHLORIDE
     Indication: PAIN
     Dosage: UNK
     Route: 048
     Dates: start: 20170127
  2. PARACETAMOL [Suspect]
     Active Substance: ACETAMINOPHEN
     Indication: PAIN
     Route: 065
  3. NUTRYELT [Concomitant]
  4. STILNOX [Suspect]
     Active Substance: ZOLPIDEM TARTRATE
     Indication: INSOMNIA
     Dosage: 10 MG, ONE IN THE EVENING
     Route: 048
  5. ACUPAN [Suspect]
     Active Substance: NEFOPAM HYDROCHLORIDE
     Indication: PAIN
     Dosage: 1 G, PRN
     Route: 042
     Dates: start: 20170127
  6. AUGMENTIN [Suspect]
     Active Substance: AMOXICILLIN\CLAVULANATE POTASSIUM
     Indication: BACTERAEMIA
     Dosage: 1 DF, Q8H [STRENGHT 2G/200 MG]
     Route: 042
     Dates: start: 20170131
  7. CUBICIN [Suspect]
     Active Substance: DAPTOMYCIN
     Indication: BACTERAEMIA
     Dosage: 1 DF, DAILY
     Route: 042
     Dates: start: 20170131
  8. PANTOPRAZOLE [Suspect]
     Active Substance: PANTOPRAZOLE SODIUM
     Indication: GASTROOESOPHAGEAL REFLUX DISEASE
     Dosage: 40 MG, ONCE A DAY
     Route: 048
  9. VENLAFAXINE [Suspect]
     Active Substance: VENLAFAXINE HYDROCHLORIDE
     Indication: MAJOR DEPRESSION
     Dosage: 37.5MG-0-75MG, ONE MORNING ONE EVENING
     Route: 048
  10. LOVENOX [Suspect]
     Active Substance: ENOXAPARIN SODIUM
     Indication: THROMBOSIS PROPHYLAXIS
     Dosage: 0.4 ML, DAILY
     Route: 058
  11. FERO GRAD LP VITAMINE C            /00989901/ [Concomitant]
     Dosage: IN THE EVENING
  12. PHLOROGLUCINOL [Concomitant]
     Active Substance: PHLOROGLUCINOL
     Dosage: 80 MG, UNK
  13. AMIKACINE                          /00391001/ [Suspect]
     Active Substance: AMIKACIN
     Indication: BACTERAEMIA
     Dosage: 15 MG/KG TIMES A DAY
     Route: 042
     Dates: start: 20170127, end: 20170130
  14. TRAMADOL. [Suspect]
     Active Substance: TRAMADOL
     Indication: PAIN
     Dosage: ONE MORNING ONE EVENING OR 1000MG-0-20MG
     Route: 048
  15. PHOCYTAN [Concomitant]
     Active Substance: .ALPHA.-GLUCOSE-1-PHOSPHATE
  16. CERNEVIT                           /01027001/ [Concomitant]
  17. OLIMEL [Concomitant]
     Active Substance: AMINO ACIDS\DEXTROSE\SOYBEAN OIL
  18. CEFTOBIPROLE [Suspect]
     Active Substance: CEFTOBIPROLE
     Indication: BACTERAEMIA
     Dosage: 500 MG, Q8H
     Route: 042
     Dates: start: 20170127, end: 20170130

REACTIONS (1)
  - Lymphopenia [Not Recovered/Not Resolved]

NARRATIVE: CASE EVENT DATE: 20170202
